FAERS Safety Report 5429334-9 (Version None)
Quarter: 2007Q3

REPORT INFORMATION
  Report Type: 
  Country: None (occurrence: None)
  Receive Date: 20070827
  Receipt Date: 20070827
  Transmission Date: 20080115
  Serious: Yes (Other)
  Sender: FDA-Public Use
  Company Number: None

PATIENT
  Age: 56 Year
  Sex: Male
  Weight: 88.4514 kg

DRUGS (1)
  1. FLECAINIDE ACETATE [Suspect]
     Indication: ATRIAL FIBRILLATION
     Dosage: TWO TIMES PER DAY PO
     Route: 048
     Dates: start: 20070802, end: 20070824

REACTIONS (3)
  - DEPRESSION [None]
  - IMPAIRED DRIVING ABILITY [None]
  - MALAISE [None]
